FAERS Safety Report 14286765 (Version 1)
Quarter: 2017Q4

REPORT INFORMATION
  Report Type: Spontaneous
  Country: HR (occurrence: HR)
  Receive Date: 20171214
  Receipt Date: 20171214
  Transmission Date: 20180321
  Serious: Yes (Hospitalization)
  Sender: FDA-Public Use
  Company Number: HR-SA-2017SA243946

PATIENT
  Age: 66 Year
  Sex: Male

DRUGS (9)
  1. PANTOPRAZOLE [Concomitant]
     Active Substance: PANTOPRAZOLE
  2. XARELTO [Suspect]
     Active Substance: RIVAROXABAN
     Indication: ATRIAL FIBRILLATION
     Route: 065
  3. ATORVASTATIN [Concomitant]
     Active Substance: ATORVASTATIN
  4. BISOPROLOL [Concomitant]
     Active Substance: BISOPROLOL
  5. AMLODIPIN [Concomitant]
     Active Substance: AMLODIPINE BESYLATE
  6. ASPIRIN PROTECT [Suspect]
     Active Substance: ASPIRIN
     Route: 065
  7. PERINDOPRIL/INDAPAMIDE [Concomitant]
  8. CLOPIDOGREL BISULFATE. [Suspect]
     Active Substance: CLOPIDOGREL BISULFATE
     Route: 065
  9. INSULIN [Concomitant]
     Active Substance: INSULIN NOS

REACTIONS (5)
  - Foot fracture [Unknown]
  - Joint dislocation [Unknown]
  - Haematoma [Unknown]
  - Anaemia [Unknown]
  - Oedema peripheral [Unknown]
